FAERS Safety Report 8538078-6 (Version None)
Quarter: 2012Q3

REPORT INFORMATION
  Report Type: 
  Country: None (occurrence: None)
  Receive Date: 20120725
  Receipt Date: 20120719
  Transmission Date: 20120928
  Serious: Yes (Other)
  Sender: FDA-Public Use
  Company Number: DE-PFIZER INC-2012176006

PATIENT
  Age: 73 Year
  Sex: Female
  Weight: 90 kg

DRUGS (4)
  1. TEMSIROLIMUS [Suspect]
     Dosage: 12.5 MG, UNK
     Route: 042
     Dates: start: 20120717, end: 20120717
  2. CYTARABINE [Concomitant]
     Indication: ACUTE LEUKAEMIA
     Dosage: 195.9 MG, PER 24 HOURS VIA PERFUSOR
     Route: 042
     Dates: start: 20120710, end: 20120717
  3. TEMSIROLIMUS [Suspect]
     Dosage: 12.5 MG, 1X/DAY
     Route: 042
     Dates: start: 20120709, end: 20120709
  4. DAUNORUBICIN HCL [Suspect]
     Indication: ACUTE LEUKAEMIA
     Dosage: 117.6 UNK, 1X/DAY
     Route: 042
     Dates: start: 20120712, end: 20120714

REACTIONS (1)
  - CARDIAC FAILURE [None]
